FAERS Safety Report 5352619-1 (Version None)
Quarter: 2007Q2

REPORT INFORMATION
  Report Type: 
  Country: None (occurrence: None)
  Receive Date: 20070518
  Receipt Date: 20060717
  Transmission Date: 20071010
  Serious: Yes (Hospitalization)
  Sender: FDA-Public Use
  Company Number: Q06-035

PATIENT
  Age: 52 Year
  Sex: Male
  Weight: 73.4827 kg

DRUGS (19)
  1. SAMARIUM (SM-153) [Suspect]
     Indication: PROSTATE CANCER
     Dosage: 0.75 MCI/KG IV
     Route: 042
     Dates: start: 20050210
  2. SAMARIUM (SM-153) [Suspect]
     Indication: PROSTATE CANCER
     Dosage: 0.75 MCI/KG IV
     Route: 042
     Dates: start: 20050505
  3. ZOMETA [Suspect]
     Dosage: 4 MG IV
     Route: 042
     Dates: start: 20050211
  4. ZOMETA [Suspect]
     Dosage: 4 MG IV
     Route: 042
     Dates: start: 20050308
  5. ZOMETA [Suspect]
     Dosage: 4 MG IV
     Route: 042
     Dates: start: 20050406
  6. ZOMETA [Suspect]
     Dosage: 4 MG IV
     Route: 042
     Dates: start: 20050505
  7. BUMEX [Concomitant]
  8. KCL EFFERVESCENT TABS [Concomitant]
  9. MORPHINE [Concomitant]
  10. PREVACID [Concomitant]
  11. CELEBREX [Concomitant]
  12. RITALIN [Concomitant]
  13. KADIAN [Concomitant]
  14. ARANESP [Concomitant]
  15. FLOMAX [Concomitant]
  16. DETROL [Concomitant]
  17. DES [Concomitant]
  18. ALBUTEROL [Concomitant]
  19. ATENOLOL [Concomitant]

REACTIONS (1)
  - ASTHENIA [None]
